FAERS Safety Report 21269589 (Version 1)
Quarter: 2022Q3

REPORT INFORMATION
  Report Type: Spontaneous
  Country: US (occurrence: None)
  Receive Date: 20220829
  Receipt Date: 20220829
  Transmission Date: 20221026
  Serious: Yes (Hospitalization)
  Sender: FDA-Public Use
  Company Number: None

PATIENT
  Age: 22 Year
  Sex: Female

DRUGS (1)
  1. LUNESTA [Suspect]
     Active Substance: ESZOPICLONE

REACTIONS (3)
  - Intentional self-injury [None]
  - Intentional self-injury [None]
  - Incorrect dose administered [None]

NARRATIVE: CASE EVENT DATE: 20220521
